FAERS Safety Report 5279673-X (Version None)
Quarter: 2007Q1

REPORT INFORMATION
  Report Type: 
  Country: None (occurrence: None)
  Receive Date: 20070323
  Receipt Date: 20070314
  Transmission Date: 20070707
  Serious: No
  Sender: FDA-Public Use
  Company Number: 2007-007

PATIENT

DRUGS (1)
  1. PHYTONADIONE [Suspect]

REACTIONS (2)
  - ACCIDENTAL NEEDLE STICK [None]
  - DEVICE BREAKAGE [None]
